FAERS Safety Report 19154728 (Version 1)
Quarter: 2021Q2

REPORT INFORMATION
  Report Type: Spontaneous
  Country: US (occurrence: US)
  Receive Date: 20210419
  Receipt Date: 20210419
  Transmission Date: 20210717
  Serious: No
  Sender: FDA-Public Use
  Company Number: US-ORGANON-2101USA007613

PATIENT

DRUGS (2)
  1. ETONOGESTREL (+) ETHINYL ESTRADIOL [Suspect]
     Active Substance: ETHINYL ESTRADIOL\ETONOGESTREL
     Dosage: UNK
     Route: 067
  2. NUVARING [Suspect]
     Active Substance: ETHINYL ESTRADIOL\ETONOGESTREL
     Dosage: 1 RING
     Route: 067

REACTIONS (11)
  - Inflammation [Unknown]
  - Uterine spasm [Unknown]
  - Muscle spasms [Unknown]
  - Vaginal haemorrhage [Unknown]
  - Mood swings [Unknown]
  - Depressed mood [Unknown]
  - Vulvovaginal discomfort [Unknown]
  - Uterine pain [Recovered/Resolved]
  - Muscular weakness [Unknown]
  - Pain [Unknown]
  - Nausea [Recovering/Resolving]
